FAERS Safety Report 10256829 (Version 1)
Quarter: 2014Q2

REPORT INFORMATION
  Report Type: Spontaneous
  Country: US (occurrence: US)
  Receive Date: 20140625
  Receipt Date: 20140625
  Transmission Date: 20141212
  Serious: No
  Sender: FDA-Public Use
  Company Number: US-009507513-1406USA011122

PATIENT
  Age: 42 Year
  Sex: Female
  Weight: 59.86 kg

DRUGS (1)
  1. NUVARING [Suspect]
     Indication: CONTRACEPTION
     Dosage: DOSE/ FREQUENCY: 3 WEEKS IN 1 WEEK OUT
     Route: 067
     Dates: start: 201306

REACTIONS (1)
  - Vaginal flatulence [Unknown]
